FAERS Safety Report 5050819-1 (Version None)
Quarter: 2006Q3

REPORT INFORMATION
  Report Type: 
  Country: None (occurrence: None)
  Receive Date: 20060710
  Receipt Date: 20060706
  Transmission Date: 20061208
  Serious: Yes (Hospitalization)
  Sender: FDA-Public Use
  Company Number: 215514

PATIENT
  Age: 69 Year
  Sex: Female
  Weight: 56 kg

DRUGS (7)
  1. MABTHERA (RITUXIMAB) CONC FOR SOLUTION FOR INFUSION [Suspect]
     Indication: CHRONIC LYMPHOCYTIC LEUKAEMIA
     Dosage: 850 MG, INTRAVENOUS
     Route: 042
     Dates: start: 20050423, end: 20050501
  2. FLUDARABINE [Suspect]
     Indication: CHRONIC LYMPHOCYTIC LEUKAEMIA
     Dosage: 25 MG/M2, INTRAVENOUS
     Route: 042
     Dates: start: 20050429, end: 20050501
  3. CYCLOPHOSPHAMIDE [Suspect]
     Indication: CHRONIC LYMPHOCYTIC LEUKAEMIA
     Dosage: 250 MG/M2, INTRAVENOUS
     Route: 042
     Dates: start: 20050429, end: 20050501
  4. VORICONAZOLE (VORICONAZOLE) [Concomitant]
  5. ALLOPURINOL [Concomitant]
  6. ESOMEPRAZOLE (ESOMEPRAZOLE MAGNESIUM) [Concomitant]
  7. INSULIN [Concomitant]

REACTIONS (2)
  - HAEMATURIA [None]
  - HAEMOLYSIS [None]
